FAERS Safety Report 24222322 (Version 1)
Quarter: 2024Q3

REPORT INFORMATION
  Report Type: Report from Study
  Country: US (occurrence: None)
  Receive Date: 20240819
  Receipt Date: 20240819
  Transmission Date: 20241017
  Serious: Yes (Hospitalization)
  Sender: ASTRAZENECA
  Company Number: 2022A285018

PATIENT
  Sex: Female

DRUGS (1)
  1. SAPHNELO [Suspect]
     Active Substance: ANIFROLUMAB-FNIA
     Route: 042
     Dates: start: 20220217

REACTIONS (5)
  - Dyspnoea [Unknown]
  - Pneumothorax [Unknown]
  - Swelling face [Unknown]
  - Multiple allergies [Unknown]
  - Obstructive airways disorder [Unknown]
